FAERS Safety Report 4688711-4 (Version None)
Quarter: 2005Q2

REPORT INFORMATION
  Report Type: 
  Country: None (occurrence: None)
  Receive Date: 20050608
  Receipt Date: 20041110
  Transmission Date: 20051028
  Serious: No
  Sender: FDA-Public Use
  Company Number: 2004-BP-10855BP

PATIENT
  Age: 69 Year
  Sex: Male

DRUGS (12)
  1. SPIRIVA [Suspect]
     Indication: CHRONIC OBSTRUCTIVE PULMONARY DISEASE
     Dosage: 18 MCG (18 MCG, QD), IH
     Route: 055
     Dates: start: 20040601
  2. SPIRIVA [Suspect]
     Indication: EMPHYSEMA
     Dosage: 18 MCG (18 MCG, QD), IH
     Route: 055
     Dates: start: 20040601
  3. SPIRIVA [Suspect]
     Indication: CHRONIC OBSTRUCTIVE PULMONARY DISEASE
     Dosage: 18 MCG (18 MCG, QD), IH
     Route: 055
     Dates: start: 20040601
  4. SPIRIVA [Suspect]
     Indication: EMPHYSEMA
     Dosage: 18 MCG (18 MCG, QD), IH
     Route: 055
     Dates: start: 20040601
  5. PREVACID [Concomitant]
  6. ZANTAC [Concomitant]
  7. BENICAR HYDROCHLORIDE [Concomitant]
  8. HYTRIN [Concomitant]
  9. AVODARET [Concomitant]
  10. ADVAIR DISKUS 100/50 [Concomitant]
  11. MULTI-VITAMINS [Concomitant]
  12. SAW PALMETTO (SERENOA REPENS) [Concomitant]

REACTIONS (1)
  - DYSGEUSIA [None]
